FAERS Safety Report 5760379-5 (Version None)
Quarter: 2008Q2

REPORT INFORMATION
  Report Type: 
  Country: None (occurrence: None)
  Receive Date: 20080602
  Receipt Date: 20080515
  Transmission Date: 20081010
  Serious: Yes (Hospitalization)
  Sender: FDA-Public Use
  Company Number: 08P-178-0452562

PATIENT
  Age: 5 Day

DRUGS (2)
  1. SYNAGIS [Suspect]
     Indication: PROPHYLAXIS
     Dosage: (100 MG) INTRAMUSCULAR
     Route: 030
     Dates: start: 20080514, end: 20080514
  2. SYNAGIS [Suspect]
     Indication: RESPIRATORY DISORDER
     Dosage: (100 MG) INTRAMUSCULAR
     Route: 030
     Dates: start: 20080514, end: 20080514

REACTIONS (1)
  - ENTEROCOLITIS [None]
